FAERS Safety Report 8401983-5 (Version None)
Quarter: 2012Q2

REPORT INFORMATION
  Report Type: 
  Country: None (occurrence: None)
  Receive Date: 20120601
  Receipt Date: 20120522
  Transmission Date: 20120825
  Serious: Yes (Hospitalization)
  Sender: FDA-Public Use
  Company Number: FR-PFIZER INC-2012123570

PATIENT
  Age: 54 Year
  Sex: Female

DRUGS (8)
  1. FLUOROURACIL [Suspect]
     Dosage: 2800 MG/M2
     Route: 025
     Dates: start: 20120405, end: 20120406
  2. ERBITUX [Suspect]
     Dosage: 500 MG/M2, 1X/DAY
     Route: 042
     Dates: start: 20120404, end: 20120404
  3. IRINOTECAN HCL [Suspect]
     Dosage: 150 MG/M2
     Route: 025
     Dates: start: 20120404, end: 20120404
  4. OXALIPLATIN [Suspect]
     Dosage: 85 MG/M2
     Route: 025
     Dates: start: 20120404, end: 20120404
  5. FLUOROURACIL [Suspect]
     Indication: COLORECTAL CANCER METASTATIC
     Dosage: 2800 MG/M2, IN SPLIT DAILY DOSES FOR 3 DAYS
     Route: 025
     Dates: start: 20120315
  6. IRINOTECAN HCL [Suspect]
     Indication: COLORECTAL CANCER METASTATIC
     Dosage: 180 MG/M2, DAY 2
     Route: 025
     Dates: start: 20120315, end: 20120315
  7. ERBITUX [Suspect]
     Indication: COLORECTAL CANCER METASTATIC
     Dosage: 500 MG/M2, (DAY 1)
     Route: 042
     Dates: start: 20120314, end: 20120314
  8. OXALIPLATIN [Suspect]
     Indication: COLORECTAL CANCER METASTATIC
     Dosage: 85 MG/M2 IN SPLIT DAILY DOSES FOR 3 DAYS
     Route: 025
     Dates: start: 20120315

REACTIONS (1)
  - DUODENAL ULCER [None]
